FAERS Safety Report 6722805-4 (Version None)
Quarter: 2010Q2

REPORT INFORMATION
  Report Type: 
  Country: None (occurrence: None)
  Receive Date: 20100512
  Receipt Date: 20100512
  Transmission Date: 20101027
  Serious: Yes (Other)
  Sender: FDA-Public Use
  Company Number: None

PATIENT
  Age: 71 Year
  Sex: Male
  Weight: 92.9874 kg

DRUGS (1)
  1. ZOCOR [Suspect]
     Indication: BLOOD CHOLESTEROL INCREASED
     Dosage: 40 MG 1 PILL DAILY PO
     Route: 048
     Dates: start: 20090815, end: 20091015

REACTIONS (2)
  - MUSCULOSKELETAL STIFFNESS [None]
  - POSTURE ABNORMAL [None]
